FAERS Safety Report 6600683-1 (Version None)
Quarter: 2010Q1

REPORT INFORMATION
  Report Type: 
  Country: None (occurrence: None)
  Receive Date: 20100223
  Receipt Date: 20100223
  Transmission Date: 20100710
  Serious: No
  Sender: FDA-Public Use
  Company Number: None

PATIENT
  Sex: Female
  Weight: 54.4316 kg

DRUGS (1)
  1. ZICAM COLD REMEDY NASAL GEL SPRA NASAL SPRAY MATRIXX [Suspect]
     Indication: NASOPHARYNGITIS
     Dosage: USED PRODUCT 1 TIME
     Dates: start: 20070606, end: 20070606

REACTIONS (5)
  - AGEUSIA [None]
  - ANOSMIA [None]
  - BURNING SENSATION [None]
  - HEADACHE [None]
  - PAIN [None]
